FAERS Safety Report 10411052 (Version 2)
Quarter: 2014Q3

REPORT INFORMATION
  Report Type: Spontaneous
  Country: US (occurrence: US)
  Receive Date: 20140826
  Receipt Date: 20140826
  Transmission Date: 20150326
  Serious: Yes (Hospitalization)
  Sender: FDA-Public Use
  Company Number: US-009507513-2009SP031688

PATIENT
  Sex: Female
  Weight: 65.77 kg

DRUGS (1)
  1. NUVARING [Suspect]
     Active Substance: ETHINYL ESTRADIOL\ETONOGESTREL
     Indication: PRODUCT USED FOR UNKNOWN INDICATION
     Dosage: UNK
     Route: 067
     Dates: start: 20060924, end: 200711

REACTIONS (14)
  - Muscle spasms [Unknown]
  - Metrorrhagia [Unknown]
  - Hypertriglyceridaemia [Unknown]
  - Metabolic syndrome [Unknown]
  - Pain [Unknown]
  - Blood lactate dehydrogenase increased [Unknown]
  - Blood bilirubin increased [Unknown]
  - Varicose vein [Unknown]
  - Dry skin [Unknown]
  - Stress [Unknown]
  - Anxiety [Unknown]
  - Beta-2 glycoprotein antibody positive [Unknown]
  - Dyspnoea [Recovered/Resolved]
  - Deep vein thrombosis [Not Recovered/Not Resolved]

NARRATIVE: CASE EVENT DATE: 200609
